FAERS Safety Report 10155977 (Version 1)
Quarter: 2014Q2

REPORT INFORMATION
  Report Type: Spontaneous
  Country: US (occurrence: US)
  Receive Date: 20140506
  Receipt Date: 20140506
  Transmission Date: 20141212
  Serious: No
  Sender: FDA-Public Use
  Company Number: US-009507513-2012SP006915

PATIENT
  Age: 4 Year
  Sex: Female
  Weight: 13.61 kg

DRUGS (2)
  1. CLARITIN ORAL SOLUTION [Suspect]
     Indication: SEASONAL ALLERGY
     Dosage: 10 MG, ONCE
     Route: 048
     Dates: start: 20120202
  2. PROVENTIL [Concomitant]
     Indication: ASTHMA
     Dosage: UNK UNK, PRN

REACTIONS (1)
  - Overdose [Not Recovered/Not Resolved]
